FAERS Safety Report 6850559-X (Version None)
Quarter: 2010Q3

REPORT INFORMATION
  Report Type: 
  Country: None (occurrence: None)
  Receive Date: 20100716
  Receipt Date: 20080109
  Transmission Date: 20110219
  Serious: No
  Sender: FDA-Public Use
  Company Number: US-PFIZER INC-2007088244

PATIENT
  Sex: Male
  Weight: 82.7 kg

DRUGS (3)
  1. CHANTIX [Suspect]
     Indication: SMOKING CESSATION THERAPY
     Route: 048
     Dates: start: 20070901, end: 20070901
  2. OXYCODONE HCL [Concomitant]
     Indication: PAIN
     Route: 048
  3. VALIUM [Concomitant]
     Route: 048

REACTIONS (9)
  - ANHIDROSIS [None]
  - DYSPHONIA [None]
  - INHIBITORY DRUG INTERACTION [None]
  - LUNG DISORDER [None]
  - MOOD ALTERED [None]
  - NAUSEA [None]
  - NIGHTMARE [None]
  - OROPHARYNGEAL PAIN [None]
  - THIRST [None]
